FAERS Safety Report 8120165-8 (Version None)
Quarter: 2012Q1

REPORT INFORMATION
  Report Type: 
  Country: None (occurrence: None)
  Receive Date: 20120207
  Receipt Date: 20120127
  Transmission Date: 20120608
  Serious: Yes (Death, Life-Threatening, Hospitalization)
  Sender: FDA-Public Use
  Company Number: US-BAXTER-2011BH040474

PATIENT
  Age: 32 Year
  Sex: Male

DRUGS (3)
  1. AUGMENTIN '125' [Concomitant]
     Indication: IMMUNODEFICIENCY COMMON VARIABLE
     Route: 065
  2. GAMMAGARD S/D [Suspect]
     Indication: IMMUNODEFICIENCY COMMON VARIABLE
     Route: 042
     Dates: start: 20110501
  3. GAMMAGARD S/D [Suspect]
     Route: 042
     Dates: start: 20111208

REACTIONS (3)
  - ANAEMIA [None]
  - HAEMOLYSIS [None]
  - MALAISE [None]
